FAERS Safety Report 23450449 (Version 1)
Quarter: 2024Q1

REPORT INFORMATION
  Report Type: Spontaneous
  Country: US (occurrence: US)
  Receive Date: 20240129
  Receipt Date: 20240129
  Transmission Date: 20240410
  Serious: Yes (Other)
  Sender: FDA-Public Use
  Company Number: US-009507513-2401USA014286

PATIENT

DRUGS (3)
  1. KEYTRUDA [Suspect]
     Active Substance: PEMBROLIZUMAB
     Indication: Oesophageal carcinoma
     Dosage: THE FIRST THREE DOSES WERE 200MG AND LAST TWO DOSES WERE 400MG
  2. KEYTRUDA [Suspect]
     Active Substance: PEMBROLIZUMAB
     Dosage: THE FIRST THREE DOSES WERE 200MG AND LAST TWO DOSES WERE 400MG
  3. KEYTRUDA [Suspect]
     Active Substance: PEMBROLIZUMAB
     Dosage: THE FIRST THREE DOSES WERE 200MG AND LAST TWO DOSES WERE 400MG

REACTIONS (1)
  - Colitis [Unknown]
